FAERS Safety Report 7164801-1 (Version None)
Quarter: 2010Q4

REPORT INFORMATION
  Report Type: 
  Country: None (occurrence: None)
  Receive Date: 20101215
  Receipt Date: 20101130
  Transmission Date: 20110411
  Serious: Yes (Hospitalization)
  Sender: FDA-Public Use
  Company Number: US-CELGENEUS-163-21880-10110836

PATIENT
  Sex: Female
  Weight: 69.916 kg

DRUGS (9)
  1. REVLIMID [Suspect]
     Route: 048
     Dates: start: 20100818, end: 20101101
  2. REVLIMID [Suspect]
     Indication: CYTOGENETIC ANALYSIS ABNORMAL
  3. ASPIRIN [Concomitant]
     Route: 048
  4. BENICAR HCT [Concomitant]
     Dosage: 40MG - 12.5MG
     Route: 048
  5. TEKTURNA [Concomitant]
     Route: 048
  6. TEKTURNA HCT [Concomitant]
     Dosage: 150MG - 12.5MG
     Route: 048
  7. PROCRIT [Concomitant]
     Route: 065
     Dates: start: 20101122
  8. HYDREA [Concomitant]
     Route: 048
     Dates: start: 20090716
  9. TORADOL [Concomitant]
     Route: 065

REACTIONS (9)
  - ARTHRALGIA [None]
  - COSTOCHONDRITIS [None]
  - DIARRHOEA [None]
  - DRY SKIN [None]
  - HAEMOGLOBIN DECREASED [None]
  - NEUTROPHIL COUNT DECREASED [None]
  - OEDEMA PERIPHERAL [None]
  - VOMITING [None]
  - WHITE BLOOD CELL COUNT DECREASED [None]
